FAERS Safety Report 7708333-8 (Version None)
Quarter: 2011Q3

REPORT INFORMATION
  Report Type: 
  Country: None (occurrence: None)
  Receive Date: 20110825
  Receipt Date: 20110819
  Transmission Date: 20111222
  Serious: No
  Sender: FDA-Public Use
  Company Number: US-BIOGENIDEC-2011BI031887

PATIENT
  Age: 42 Year
  Sex: Female

DRUGS (1)
  1. AVONEX [Suspect]
     Indication: MULTIPLE SCLEROSIS
     Route: 030
     Dates: start: 20101217

REACTIONS (7)
  - FATIGUE [None]
  - PAIN IN EXTREMITY [None]
  - DIZZINESS [None]
  - EYE PAIN [None]
  - HYPOAESTHESIA [None]
  - STRESS [None]
  - BACK PAIN [None]
